FAERS Safety Report 8011218-3 (Version None)
Quarter: 2011Q4

REPORT INFORMATION
  Report Type: 
  Country: None (occurrence: None)
  Receive Date: 20111222
  Receipt Date: 20111208
  Transmission Date: 20120403
  Serious: Yes (Other)
  Sender: FDA-Public Use
  Company Number: 1000026322

PATIENT
  Age: 52 Year
  Sex: Female
  Weight: 56 kg

DRUGS (2)
  1. YASMIN (DROSPIRENONE, ETHYLESTRADIOL) (DROSPIRENONE, ETHINYLESTRADIOL) [Concomitant]
  2. ESCITALOPRAM [Suspect]
     Indication: DEPRESSION
     Dosage: 10 MG (10 MG, 1 IN 1 D), ORAL
     Route: 048
     Dates: start: 20111024, end: 20111024

REACTIONS (4)
  - DIZZINESS [None]
  - DAYDREAMING [None]
  - PANIC ATTACK [None]
  - NAUSEA [None]
